FAERS Safety Report 6460153-0 (Version None)
Quarter: 2009Q4

REPORT INFORMATION
  Report Type: 
  Country: None (occurrence: None)
  Receive Date: 20091129
  Receipt Date: 20091117
  Transmission Date: 20100525
  Serious: Yes (Hospitalization)
  Sender: FDA-Public Use
  Company Number: DE-ELI_LILLY_AND_COMPANY-DE200911004614

PATIENT
  Sex: Male

DRUGS (10)
  1. ALIMTA [Suspect]
     Dosage: 500 MG/M2 (TOTAL 1075MG), 20MINS, INTRAVENOUSLY, UNK
     Route: 042
     Dates: start: 20091110, end: 20091110
  2. FOLIC ACID [Concomitant]
  3. VITAMIN B-12 [Concomitant]
  4. MARCUMAR [Concomitant]
  5. DURAGESIC-100 [Concomitant]
  6. PRAVASTATIN [Concomitant]
  7. ALDACTONE [Concomitant]
  8. TORSEMIDE [Concomitant]
  9. AMARYL [Concomitant]
  10. SPIRIVA [Concomitant]

REACTIONS (4)
  - DYSPNOEA [None]
  - NEUTROPENIA [None]
  - RASH GENERALISED [None]
  - URTICARIA [None]
